FAERS Safety Report 17490618 (Version 1)
Quarter: 2020Q1

REPORT INFORMATION
  Report Type: Spontaneous
  Country: US (occurrence: US)
  Receive Date: 20200303
  Receipt Date: 20200303
  Transmission Date: 20200409
  Serious: No
  Sender: FDA-Public Use
  Company Number: US-AKORN PHARMACEUTICALS-2019AKN01132

PATIENT
  Age: 37 Year
  Sex: Female

DRUGS (2)
  1. MYORISAN [Suspect]
     Active Substance: ISOTRETINOIN
     Indication: ACNE
     Dosage: 40 MG, 1X/DAY
     Route: 048
     Dates: start: 20190311, end: 2019
  2. MYORISAN [Suspect]
     Active Substance: ISOTRETINOIN
     Indication: ACNE
     Dosage: 20 MG, 2X/DAY
     Route: 048
     Dates: start: 20190201, end: 201903

REACTIONS (4)
  - Lip dry [Recovered/Resolved]
  - Off label use [Recovered/Resolved]
  - Arthralgia [Recovering/Resolving]
  - Unevaluable event [Recovered/Resolved]

NARRATIVE: CASE EVENT DATE: 201903
